FAERS Safety Report 7089219-1 (Version None)
Quarter: 2010Q4

REPORT INFORMATION
  Report Type: 
  Country: None (occurrence: None)
  Receive Date: 20101108
  Receipt Date: 20101029
  Transmission Date: 20110411
  Serious: Yes (Hospitalization)
  Sender: FDA-Public Use
  Company Number: AU-GENZYME-CLOF-1001290

PATIENT
  Sex: Female

DRUGS (1)
  1. CLOLAR [Suspect]
     Indication: ACUTE MYELOID LEUKAEMIA
     Dosage: UNK
     Route: 065
     Dates: start: 20101025, end: 20101029

REACTIONS (3)
  - CONSTIPATION [None]
  - FATIGUE [None]
  - HAEMOGLOBIN DECREASED [None]
